FAERS Safety Report 6224165-4 (Version None)
Quarter: 2009Q2

REPORT INFORMATION
  Report Type: 
  Country: None (occurrence: None)
  Receive Date: 20090612
  Receipt Date: 20090312
  Transmission Date: 20091009
  Serious: No
  Sender: FDA-Public Use
  Company Number: US-ABBOTT-09P-163-0562644-00

PATIENT
  Sex: Male

DRUGS (3)
  1. HUMIRA [Suspect]
     Indication: PSORIASIS
     Route: 058
     Dates: start: 20090101, end: 20090101
  2. HUMIRA [Suspect]
     Dates: start: 20090101
  3. CLOBETASOL PROPIONATE [Concomitant]
     Indication: PSORIASIS
     Dosage: 0.05 %
     Route: 061

REACTIONS (1)
  - ACCIDENTAL OVERDOSE [None]
